FAERS Safety Report 9124193 (Version 1)
Quarter: 2013Q1

REPORT INFORMATION
  Report Type: Report from Study
  Country: GB (occurrence: GB)
  Receive Date: 20130227
  Receipt Date: 20130227
  Transmission Date: 20140127
  Serious: Yes (Other)
  Sender: FDA-Public Use
  Company Number: PHHO2013GB003162

PATIENT
  Sex: 0

DRUGS (2)
  1. ZOLEDRONATE [Suspect]
     Indication: METASTASES TO BONE
     Dosage: 4 MG, UNK
     Route: 042
     Dates: start: 20101112, end: 20120302
  2. CELECOXIB [Suspect]
     Indication: METASTASES TO BONE
     Dosage: 400 MG, BID
     Dates: start: 20101112

REACTIONS (1)
  - Osteonecrosis of jaw [Not Recovered/Not Resolved]
